FAERS Safety Report 5105187-3 (Version None)
Quarter: 2006Q3

REPORT INFORMATION
  Report Type: 
  Country: None (occurrence: None)
  Receive Date: 20060911
  Receipt Date: 20060828
  Transmission Date: 20061208
  Serious: Yes (Other)
  Sender: FDA-Public Use
  Company Number: 229270

PATIENT
  Age: 57 Year
  Sex: Female

DRUGS (1)
  1. RAPTIVA [Suspect]
     Indication: PSORIASIS
     Dosage: 1MG/KG, 1 WEEK, SUBCUTANEOUS
     Route: 058
     Dates: start: 20060101

REACTIONS (6)
  - INCREASED UPPER AIRWAY SECRETION [None]
  - LARYNGITIS [None]
  - LUNG DISORDER [None]
  - PAIN [None]
  - PHARYNGOLARYNGEAL PAIN [None]
  - SKIN DISCOLOURATION [None]
